FAERS Safety Report 22841033 (Version 3)
Quarter: 2025Q2

REPORT INFORMATION
  Report Type: Spontaneous
  Country: DE (occurrence: DE)
  Receive Date: 20230820
  Receipt Date: 20250527
  Transmission Date: 20250716
  Serious: Yes (Hospitalization)
  Sender: AUROBINDO
  Company Number: DE-OTSUKA-2023_020204

PATIENT
  Age: 6 Decade
  Sex: Male

DRUGS (9)
  1. ARIPIPRAZOLE [Suspect]
     Active Substance: ARIPIPRAZOLE
     Indication: Schizophrenia
     Dosage: 20 MILLIGRAM, ONCE A DAY (20 MG, QD)
     Route: 065
  2. ARIPIPRAZOLE [Suspect]
     Active Substance: ARIPIPRAZOLE
     Dosage: 10 MILLIGRAM, ONCE A DAY 10 MG, QD()
     Route: 065
  3. ARIPIPRAZOLE [Suspect]
     Active Substance: ARIPIPRAZOLE
     Dosage: 30 MILLIGRAM, ONCE A DAY (30 MG, QD)
     Route: 065
  4. CLOZAPINE [Suspect]
     Active Substance: CLOZAPINE
     Indication: Schizophrenia
     Dosage: 200 MILLIGRAM, ONCE A DAY (200 MG, QD)
     Route: 065
  5. CLOZAPINE [Suspect]
     Active Substance: CLOZAPINE
     Indication: Antipsychotic therapy
     Dosage: 250 MILLIGRAM, ONCE A DAY (250 MG, QD)
     Route: 065
  6. LORAZEPAM [Concomitant]
     Active Substance: LORAZEPAM
     Indication: Epilepsy
     Dosage: 2 MILLIGRAM, ONCE A DAY (2 MG, QD)
     Route: 065
  7. RAMIPRIL [Concomitant]
     Active Substance: RAMIPRIL
     Indication: Essential hypertension
     Dosage: 5 MILLIGRAM, ONCE A DAY (5 MG, QD)
     Route: 065
  8. TORSEMIDE [Concomitant]
     Active Substance: TORSEMIDE
     Indication: Essential hypertension
     Dosage: 5 MILLIGRAM, ONCE A DAY (5 MG DAILY)
     Route: 065
  9. VALPROATE [Concomitant]
     Active Substance: VALPROIC ACID
     Indication: Epilepsy
     Dosage: 1300 MILLIGRAM, ONCE A DAY (1300 MG, QD)
     Route: 065

REACTIONS (8)
  - Myalgia [Unknown]
  - Torticollis [Recovering/Resolving]
  - Muscle spasms [Unknown]
  - Hyponatraemia [Unknown]
  - C-reactive protein increased [Unknown]
  - Posture abnormal [Recovered/Resolved]
  - Antipsychotic drug level below therapeutic [Unknown]
  - Balance disorder [Unknown]
